FAERS Safety Report 7471617-5 (Version None)
Quarter: 2011Q2

REPORT INFORMATION
  Report Type: 
  Country: None (occurrence: None)
  Receive Date: 20110502
  Receipt Date: 20110418
  Transmission Date: 20111010
  Serious: Yes (Other)
  Sender: FDA-Public Use
  Company Number: 2011-00451

PATIENT
  Age: 76 Year
  Sex: Female
  Weight: 80.7403 kg

DRUGS (4)
  1. COZAAR [Concomitant]
  2. GLIMPIRIDE [Concomitant]
  3. AMLODIPINE BESYLATE [Suspect]
     Indication: HYPERTENSION
     Dosage: 10 MG (10 MG, 1 IN 1 D),PER ORAL
     Route: 048
     Dates: start: 20110315, end: 20110401
  4. ALLOPURINOL [Concomitant]

REACTIONS (1)
  - TYPE 2 DIABETES MELLITUS [None]
